FAERS Safety Report 25523453 (Version 1)
Quarter: 2025Q3

REPORT INFORMATION
  Report Type: Spontaneous
  Country: EU (occurrence: EU)
  Receive Date: 20250707
  Receipt Date: 20250707
  Transmission Date: 20251020
  Serious: Yes (Death, Hospitalization, Other)
  Sender: AUROBINDO
  Company Number: EU-AUROBINDO-AUR-APL-2025-032891

PATIENT
  Age: 68 Year
  Sex: Male

DRUGS (1)
  1. CARBOPLATIN [Suspect]
     Active Substance: CARBOPLATIN
     Indication: Oropharyngeal squamous cell carcinoma
     Route: 065

REACTIONS (7)
  - Metastases to lung [Fatal]
  - Neoplasm progression [Fatal]
  - Intervertebral discitis [Unknown]
  - Haematotoxicity [Unknown]
  - Skin toxicity [Unknown]
  - Neck pain [Unknown]
  - Fungal infection [Recovered/Resolved]
